FAERS Safety Report 10404019 (Version 2)
Quarter: 2014Q4

REPORT INFORMATION
  Report Type: Spontaneous
  Country: US (occurrence: US)
  Receive Date: 20140822
  Receipt Date: 20141017
  Transmission Date: 20150528
  Serious: Yes (Death, Hospitalization, Other)
  Sender: FDA-Public Use
  Company Number: US-ASTRAZENECA-2014SE62608

PATIENT
  Age: 15711 Day
  Sex: Male
  Weight: 82.1 kg

DRUGS (11)
  1. SYMBICORT [Suspect]
     Active Substance: BUDESONIDE\FORMOTEROL FUMARATE DIHYDRATE
     Indication: ASTHMA
     Dosage: 80/4.5, 2 PUFFS BID
     Route: 055
     Dates: start: 20140724
  2. NOVOLOG [Concomitant]
     Active Substance: INSULIN ASPART
     Dosage: SYRINGE, 6 UNITS
     Route: 058
     Dates: start: 20140729
  3. SODIUM CHLORIDE. [Concomitant]
     Active Substance: SODIUM CHLORIDE
     Dosage: SYRINGE 5-10 ML, 10 ML
     Route: 042
     Dates: start: 20140729
  4. DIPRIVAN [Concomitant]
     Active Substance: PROPOFOL
     Dosage: 10 MG/ML
     Dates: start: 20140729
  5. ZITHROMAX [Concomitant]
     Active Substance: AZITHROMYCIN DIHYDRATE
     Dosage: 500 MG IN SODIUM CHLORIDE 0.9 %, 100 ML IVPB
     Route: 042
     Dates: start: 20140729
  6. PROVENTIL [Concomitant]
     Active Substance: ALBUTEROL
     Dosage: NEBULIZER SOLUTION 2.5 MG
     Dates: start: 20140729
  7. SOLU-MEDROL [Concomitant]
     Active Substance: METHYLPREDNISOLONE SODIUM SUCCINATE
     Dosage: 40 MG/ML
     Dates: start: 20140729
  8. LACTATED RINGERS INFUSION [Concomitant]
     Dates: start: 20140729
  9. ZOSYN [Concomitant]
     Active Substance: PIPERACILLIN SODIUM\TAZOBACTAM SODIUM
     Dosage: 3.375 G IN SODIUM CHLORIDE 0.9 %, 100 ML IVPB
  10. PROVENTIL [Concomitant]
     Active Substance: ALBUTEROL
     Dosage: NEBULIZER SOLUTION 2.5 MG
     Dates: start: 20140729
  11. MORPHINE [Concomitant]
     Active Substance: MORPHINE
     Dosage: SYRINGE, 4 MG
     Route: 042
     Dates: start: 20140729

REACTIONS (23)
  - Poisoning [Unknown]
  - Hypokalaemia [Unknown]
  - Cardiac failure [Fatal]
  - Metabolic acidosis [Fatal]
  - Blood calcium decreased [Unknown]
  - Respiratory acidosis [Fatal]
  - Bacterial test positive [Unknown]
  - Hypothermia [Unknown]
  - Respiratory distress [Fatal]
  - Pneumonia aspiration [Fatal]
  - Loss of consciousness [Unknown]
  - Blood glucose increased [Unknown]
  - Status asthmaticus [Fatal]
  - Asthma [Fatal]
  - Status epilepticus [Fatal]
  - Acute kidney injury [Fatal]
  - Thrombocytopenia [Fatal]
  - Acute respiratory failure [Fatal]
  - Intentional product misuse [Unknown]
  - Aspartate aminotransferase increased [Unknown]
  - Brain injury [Fatal]
  - Pulseless electrical activity [Fatal]
  - Lymphocyte count increased [Unknown]

NARRATIVE: CASE EVENT DATE: 20140707
